FAERS Safety Report 10424633 (Version 3)
Quarter: 2014Q4

REPORT INFORMATION
  Report Type: Spontaneous
  Country: US (occurrence: US)
  Receive Date: 20140902
  Receipt Date: 20141212
  Transmission Date: 20150528
  Serious: Yes (Other)
  Sender: FDA-Public Use
  Company Number: US-PFIZER INC-2014242549

PATIENT
  Age: 57 Year
  Sex: Male
  Weight: 115.64 kg

DRUGS (3)
  1. AROMASIN [Suspect]
     Active Substance: EXEMESTANE
     Indication: BREAST CANCER MALE
     Dosage: 25 MG, 1X/DAY
     Route: 048
     Dates: start: 20140107
  2. XELODA [Suspect]
     Active Substance: CAPECITABINE
     Indication: BREAST CANCER MALE
     Dosage: UNK
     Dates: start: 20140107
  3. COUMADIN [Concomitant]
     Active Substance: WARFARIN SODIUM
     Dosage: UNK
     Dates: start: 201311

REACTIONS (6)
  - Haemorrhage [Unknown]
  - Nephrolithiasis [Unknown]
  - Cystitis [Unknown]
  - Blood urine present [Unknown]
  - Off label use [Unknown]
  - Weight increased [Unknown]

NARRATIVE: CASE EVENT DATE: 2014
